FAERS Safety Report 7244187-4 (Version None)
Quarter: 2011Q1

REPORT INFORMATION
  Report Type: 
  Country: None (occurrence: None)
  Receive Date: 20110125
  Receipt Date: 20110111
  Transmission Date: 20110831
  Serious: No
  Sender: FDA-Public Use
  Company Number: US-PFIZER INC-2011007677

PATIENT
  Age: 90 Year
  Sex: Male

DRUGS (3)
  1. LEXAPRO [Suspect]
     Dosage: UNK
  2. CARDURA [Suspect]
     Indication: BENIGN PROSTATIC HYPERPLASIA
     Dosage: UNK
  3. LASIX [Suspect]
     Dosage: UNK

REACTIONS (3)
  - ANXIETY [None]
  - INSOMNIA [None]
  - DIZZINESS [None]
